FAERS Safety Report 7776448-4 (Version None)
Quarter: 2011Q3

REPORT INFORMATION
  Report Type: 
  Country: None (occurrence: None)
  Receive Date: 20110926
  Receipt Date: 20110914
  Transmission Date: 20111222
  Serious: Yes (Hospitalization, Other)
  Sender: FDA-Public Use
  Company Number: US-JNJFOC-20110906452

PATIENT
  Sex: Male
  Weight: 78.47 kg

DRUGS (2)
  1. HALDOL [Suspect]
     Indication: ABNORMAL BEHAVIOUR
     Route: 065
     Dates: start: 19860101, end: 19960101
  2. LITHIUM [Suspect]
     Indication: ABNORMAL BEHAVIOUR
     Route: 065
     Dates: start: 19960101, end: 20010101

REACTIONS (7)
  - FEELING ABNORMAL [None]
  - ABNORMAL BEHAVIOUR [None]
  - EMOTIONAL DISTRESS [None]
  - LOSS OF CONSCIOUSNESS [None]
  - ACTIVITIES OF DAILY LIVING IMPAIRED [None]
  - MEMORY IMPAIRMENT [None]
  - CRIME [None]
